FAERS Safety Report 21635659 (Version 1)
Quarter: 2022Q4

REPORT INFORMATION
  Report Type: Spontaneous
  Country: US (occurrence: US)
  Receive Date: 20221123
  Receipt Date: 20221123
  Transmission Date: 20230112
  Serious: No
  Sender: FDA-Public Use
  Company Number: US-INCYTE CORPORATION-2022IN011165

PATIENT

DRUGS (4)
  1. JAKAFI [Suspect]
     Active Substance: RUXOLITINIB
     Indication: Thalassaemia minor
     Dosage: 5 MILLIGRAM, BID, AT ABOUT THE SAME TIME EACH DAY
     Route: 048
  2. JAKAFI [Suspect]
     Active Substance: RUXOLITINIB
     Indication: Anaemia
  3. JAKAFI [Suspect]
     Active Substance: RUXOLITINIB
     Indication: Myelodysplastic syndrome
  4. JAKAFI [Suspect]
     Active Substance: RUXOLITINIB
     Indication: Stem cell transplant

REACTIONS (1)
  - Off label use [Unknown]
